FAERS Safety Report 15663266 (Version 1)
Quarter: 2018Q4

REPORT INFORMATION
  Report Type: Spontaneous
  Country: LT (occurrence: LT)
  Receive Date: 20181128
  Receipt Date: 20181128
  Transmission Date: 20190205
  Serious: Yes (Hospitalization)
  Sender: FDA-Public Use
  Company Number: LT-TEVA-2018-LT-979067

PATIENT
  Age: 22 Year
  Sex: Female
  Weight: 50 kg

DRUGS (1)
  1. FINLEPSIN [Suspect]
     Active Substance: CARBAMAZEPINE
     Indication: SUICIDE ATTEMPT
     Route: 048
     Dates: start: 201810, end: 201810

REACTIONS (2)
  - Somnolence [Recovered/Resolved]
  - Asthenia [Recovered/Resolved]

NARRATIVE: CASE EVENT DATE: 20181021
